FAERS Safety Report 4958163-5 (Version None)
Quarter: 2006Q1

REPORT INFORMATION
  Report Type: 
  Country: None (occurrence: None)
  Receive Date: 20060330
  Receipt Date: 20060120
  Transmission Date: 20060701
  Serious: Yes (Hospitalization)
  Sender: FDA-Public Use
  Company Number: US-ROCHE-432953

PATIENT
  Age: 47 Year
  Sex: Female
  Weight: 59 kg

DRUGS (2)
  1. PEGASYS [Suspect]
     Indication: HEPATITIS C
     Dosage: STRENGTH: 180 MCG/0.5ML, DOSAGE REGIMEN REPORTED AS 180MCG PER WEEK
     Route: 058
     Dates: start: 20060113, end: 20060127
  2. RIBAVIRIN [Suspect]
     Indication: HEPATITIS C
     Route: 048
     Dates: start: 20060113, end: 20060127

REACTIONS (10)
  - ANTIPHOSPHOLIPID ANTIBODIES POSITIVE [None]
  - CHEST PAIN [None]
  - CONTUSION [None]
  - DYSPNOEA [None]
  - FALL [None]
  - HAEMOGLOBIN DECREASED [None]
  - HEADACHE [None]
  - PAIN IN EXTREMITY [None]
  - SYNCOPE [None]
  - WHITE BLOOD CELL COUNT DECREASED [None]
